FAERS Safety Report 18845443 (Version 1)
Quarter: 2021Q1

REPORT INFORMATION
  Report Type: Spontaneous
  Country: US (occurrence: US)
  Receive Date: 20210203
  Receipt Date: 20210203
  Transmission Date: 20210419
  Serious: Yes (Disabling, Other)
  Sender: FDA-Public Use
  Company Number: None

PATIENT
  Age: 18 Year
  Sex: Female
  Weight: 64.41 kg

DRUGS (11)
  1. AMITRIPTYLINE [Concomitant]
     Active Substance: AMITRIPTYLINE
  2. PROPRANOLOL [Concomitant]
     Active Substance: PROPRANOLOL HYDROCHLORIDE
  3. NEXPLANON [Suspect]
     Active Substance: ETONOGESTREL
  4. GABAPENTIN. [Concomitant]
     Active Substance: GABAPENTIN
  5. ORILISSA [Concomitant]
     Active Substance: ELAGOLIX SODIUM
  6. NAPROXEN. [Concomitant]
     Active Substance: NAPROXEN
  7. ADDERALL [Concomitant]
     Active Substance: AMPHETAMINE ASPARTATE\AMPHETAMINE SULFATE\DEXTROAMPHETAMINE SACCHARATE\DEXTROAMPHETAMINE SULFATE
  8. IBUPROFEN. [Concomitant]
     Active Substance: IBUPROFEN
  9. MELATONIN [Concomitant]
     Active Substance: MELATONIN
  10. CYMBALS [Concomitant]
  11. TYLENOL [Concomitant]
     Active Substance: ACETAMINOPHEN

REACTIONS (9)
  - Contusion [None]
  - Erythema [None]
  - Emotional disorder [None]
  - Nerve injury [None]
  - Pain [None]
  - Mental disorder [None]
  - Skin irritation [None]
  - Device dislocation [None]
  - Swelling [None]

NARRATIVE: CASE EVENT DATE: 20171218
